FAERS Safety Report 7280128-1 (Version None)
Quarter: 2011Q1

REPORT INFORMATION
  Report Type: 
  Country: None (occurrence: None)
  Receive Date: 20110208
  Receipt Date: 20110202
  Transmission Date: 20110831
  Serious: No
  Sender: FDA-Public Use
  Company Number: JP-JNJFOC-20110106805

PATIENT
  Age: 59 Year
  Sex: Male

DRUGS (3)
  1. LOXONIN [Concomitant]
     Indication: CANCER PAIN
     Route: 048
  2. DUROTEP MT [Suspect]
     Indication: CANCER PAIN
     Route: 062
  3. OXYCODONE HCL [Concomitant]
     Indication: CANCER PAIN
     Route: 048

REACTIONS (3)
  - APPLICATION SITE ERYTHEMA [None]
  - APPLICATION SITE HAEMATOMA [None]
  - WRONG TECHNIQUE IN DRUG USAGE PROCESS [None]
